FAERS Safety Report 5942067-5 (Version None)
Quarter: 2008Q4

REPORT INFORMATION
  Report Type: 
  Country: None (occurrence: None)
  Receive Date: 20081105
  Receipt Date: 20081103
  Transmission Date: 20090506
  Serious: Yes (Other)
  Sender: FDA-Public Use
  Company Number: A0754829A

PATIENT
  Age: 35 Year
  Sex: Male
  Weight: 80 kg

DRUGS (3)
  1. AMOXICILLIN + CLAVULANATE POTASSIUM [Suspect]
     Indication: PNEUMONIA
     Dosage: 500MG THREE TIMES PER DAY
     Route: 065
     Dates: start: 20081026
  2. OMEPRAZOLE [Concomitant]
     Dates: start: 20030101
  3. UNKNOWN MEDICATION [Concomitant]
     Dates: start: 20070101

REACTIONS (1)
  - MELAENA [None]
